FAERS Safety Report 23342405 (Version 1)
Quarter: 2023Q4

REPORT INFORMATION
  Report Type: Spontaneous
  Country: SK (occurrence: SK)
  Receive Date: 20231227
  Receipt Date: 20231227
  Transmission Date: 20240110
  Serious: Yes (Other)
  Sender: FDA-Public Use
  Company Number: None

PATIENT
  Age: 31 Year
  Sex: Male

DRUGS (15)
  1. LEVETIRACETAM [Suspect]
     Active Substance: LEVETIRACETAM
     Indication: Partial seizures
     Dosage: 250 MG, ONCE PER DAY
     Route: 065
  2. LEVETIRACETAM [Suspect]
     Active Substance: LEVETIRACETAM
     Indication: Epilepsy
     Dosage: 250 MG, ONCE PER DAY
  3. CARBAMAZEPINE [Suspect]
     Active Substance: CARBAMAZEPINE
     Indication: Simple partial seizures
     Dosage: UNK,UNK (REDUCED DOSE)
     Route: 065
  4. CARBAMAZEPINE [Suspect]
     Active Substance: CARBAMAZEPINE
     Indication: Partial seizures
  5. CARBAMAZEPINE [Suspect]
     Active Substance: CARBAMAZEPINE
     Indication: Epilepsy
     Dosage: UNK,UNK (REDUCED DOSE)
     Route: 065
  6. LACOSAMIDE [Suspect]
     Active Substance: LACOSAMIDE
     Indication: Partial seizures
     Dosage: 400 MG, ONCE PER DAY, TRIPLE COMBINATION
  7. LACOSAMIDE [Suspect]
     Active Substance: LACOSAMIDE
     Indication: Frontal lobe epilepsy
     Dosage: UNK, UNK( DOSE LOWER THAN 400MG/DAY)QD
  8. PERAMPANEL [Suspect]
     Active Substance: PERAMPANEL
     Indication: Frontal lobe epilepsy
     Dosage: 2 MG, ONCE PER DAY
     Route: 065
  9. PERAMPANEL [Suspect]
     Active Substance: PERAMPANEL
     Indication: Partial seizures
     Dosage: 12 MG, ONCE PER DAY
     Route: 065
     Dates: start: 2022
  10. VALPROATE [Suspect]
     Active Substance: VALPROIC ACID
     Indication: Focal dyscognitive seizures
     Dosage: 1500 MG, ONCE PER DAY
     Route: 065
     Dates: start: 2022
  11. VALPROATE [Suspect]
     Active Substance: VALPROIC ACID
     Indication: Frontal lobe epilepsy
  12. VALPROATE [Suspect]
     Active Substance: VALPROIC ACID
     Indication: Partial seizures
  13. VALPROATE [Suspect]
     Active Substance: VALPROIC ACID
     Indication: Simple partial seizures
  14. CENOBAMATE [Concomitant]
     Active Substance: CENOBAMATE
     Indication: Partial seizures
     Dosage: 300 MG, ONCE PER DAY
  15. CENOBAMATE [Concomitant]
     Active Substance: CENOBAMATE
     Indication: Epilepsy
     Dosage: 250 MG, ONCE PER DAY
     Dates: start: 202303

REACTIONS (5)
  - Psychomotor skills impaired [Recovered/Resolved]
  - Drug ineffective [Recovered/Resolved]
  - Multiple-drug resistance [Unknown]
  - Dysarthria [Recovered/Resolved]
  - Weight increased [Recovered/Resolved]
